FAERS Safety Report 20923088 (Version 1)
Quarter: 2022Q2

REPORT INFORMATION
  Report Type: Spontaneous
  Country: AR (occurrence: None)
  Receive Date: 20220607
  Receipt Date: 20220607
  Transmission Date: 20220721
  Serious: Yes (Other)
  Sender: FDA-Public Use
  Company Number: 2022A202326

PATIENT
  Age: 39 Year
  Sex: Female

DRUGS (4)
  1. OSIMERTINIB [Suspect]
     Active Substance: OSIMERTINIB
     Indication: Lung cancer metastatic
     Route: 048
  2. OSIMERTINIB [Suspect]
     Active Substance: OSIMERTINIB
     Indication: Lung cancer metastatic
     Route: 048
  3. CARBOPLATIN [Concomitant]
     Active Substance: CARBOPLATIN
     Indication: Chemotherapy
  4. PEMETREXED [Concomitant]
     Active Substance: PEMETREXED
     Indication: Chemotherapy

REACTIONS (3)
  - Malignant neoplasm progression [Recovering/Resolving]
  - Acquired gene mutation [Unknown]
  - Drug resistance [Unknown]
